FAERS Safety Report 12398877 (Version 1)
Quarter: 2016Q2

REPORT INFORMATION
  Report Type: Report from Study
  Country: BR (occurrence: BR)
  Receive Date: 20160524
  Receipt Date: 20160524
  Transmission Date: 20160815
  Serious: Yes (Death)
  Sender: FDA-Public Use
  Company Number: PHHY2016BR071206

PATIENT
  Sex: Female
  Weight: 40 kg

DRUGS (1)
  1. DIOVAN AMLO FIX [Suspect]
     Active Substance: AMLODIPINE\VALSARTAN
     Indication: BLOOD PRESSURE ABNORMAL
     Dosage: 1 DF (AMLODIPINE 5 MG AND VALSARTAN 160 MG), QD
     Route: 048

REACTIONS (1)
  - Dementia Alzheimer^s type [Fatal]
